FAERS Safety Report 18462951 (Version 2)
Quarter: 2022Q4

REPORT INFORMATION
  Report Type: Spontaneous
  Country: US (occurrence: US)
  Receive Date: 20201104
  Receipt Date: 20221213
  Transmission Date: 20230113
  Serious: No
  Sender: FDA-Public Use
  Company Number: US-PFIZER INC-2015406728

PATIENT
  Age: 77 Year
  Sex: Female
  Weight: 86 kg

DRUGS (10)
  1. TOVIAZ [Suspect]
     Active Substance: FESOTERODINE FUMARATE
     Indication: Urinary incontinence
     Dosage: UNK
  2. TOVIAZ [Suspect]
     Active Substance: FESOTERODINE FUMARATE
     Indication: Osteoarthritis
     Dosage: 8 MG, 1X/DAY
     Route: 048
  3. TOVIAZ [Suspect]
     Active Substance: FESOTERODINE FUMARATE
     Indication: Fibromyalgia
  4. TOVIAZ [Suspect]
     Active Substance: FESOTERODINE FUMARATE
     Indication: Intervertebral disc degeneration
  5. CELEBREX [Concomitant]
     Active Substance: CELECOXIB
     Dosage: UNK
  6. LYRICA [Concomitant]
     Active Substance: PREGABALIN
     Indication: Osteoarthritis
     Dosage: UNK, 2X/DAY
  7. LYRICA [Concomitant]
     Active Substance: PREGABALIN
     Indication: Fibromyalgia
     Dosage: UNK, 3X/DAY
  8. LYRICA [Concomitant]
     Active Substance: PREGABALIN
     Indication: Arthritis
  9. LYRICA [Concomitant]
     Active Substance: PREGABALIN
     Indication: Intervertebral disc degeneration
  10. SKELAXIN [Concomitant]
     Active Substance: METAXALONE
     Dosage: UNK

REACTIONS (2)
  - Anxiety [Unknown]
  - Illness [Unknown]
